FAERS Safety Report 10482645 (Version 2)
Quarter: 2014Q4

REPORT INFORMATION
  Report Type: Spontaneous
  Country: CH (occurrence: CH)
  Receive Date: 20140929
  Receipt Date: 20141230
  Transmission Date: 20150528
  Serious: Yes (Death)
  Sender: FDA-Public Use
  Company Number: PHHY2014CH126879

PATIENT
  Age: 58 Year
  Sex: Male

DRUGS (4)
  1. FLUORESCEINE [Suspect]
     Active Substance: FLUORESCEIN SODIUM
     Indication: DIABETIC RETINOPATHY
  2. FLUORESCEINE [Suspect]
     Active Substance: FLUORESCEIN SODIUM
     Indication: ANGIOGRAM RETINA
     Dosage: 5 MG (TOTAL), UNK, STOP DATE 10-SEP-2014
     Route: 042
     Dates: start: 20140910
  3. INSULIN [Concomitant]
     Active Substance: INSULIN NOS
     Indication: PRODUCT USED FOR UNKNOWN INDICATION
     Dosage: STOP DATE 10-SEP-2014 00:00
     Route: 065
     Dates: start: 2003
  4. JANUVIA [Concomitant]
     Active Substance: SITAGLIPTIN PHOSPHATE
     Indication: PRODUCT USED FOR UNKNOWN INDICATION
     Dosage: UNK
     Route: 065

REACTIONS (14)
  - Syncope [Fatal]
  - Anaphylactic shock [Fatal]
  - Cardiovascular disorder [Fatal]
  - Lactic acidosis [Fatal]
  - Anaphylactic reaction [Fatal]
  - Respiratory disorder [Fatal]
  - Hypokinesia [Fatal]
  - Rectal haemorrhage [Fatal]
  - Nausea [Unknown]
  - Pulseless electrical activity [Fatal]
  - Catheter site haemorrhage [Fatal]
  - Thrombocytopenia [Fatal]
  - Coronary artery stenosis [Fatal]
  - Cold sweat [Unknown]

NARRATIVE: CASE EVENT DATE: 20140910
